FAERS Safety Report 6574829-8 (Version None)
Quarter: 2010Q1

REPORT INFORMATION
  Report Type: 
  Country: None (occurrence: None)
  Receive Date: 20100209
  Receipt Date: 20090723
  Transmission Date: 20100710
  Serious: Yes (Death, Hospitalization, Other)
  Sender: FDA-Public Use
  Company Number: PHEH2007US01138

PATIENT
  Sex: Male
  Weight: 115.4 kg

DRUGS (20)
  1. EXJADE [Suspect]
     Indication: IRON OVERLOAD
     Dosage: 2500 MG, QD
     Route: 048
     Dates: start: 20060222, end: 20061227
  2. EXJADE [Suspect]
     Indication: MYELODYSPLASTIC SYNDROME
  3. CHEMOTHERAPEUTICS,OTHER [Concomitant]
     Dates: start: 20060608
  4. CHEMOTHERAPEUTICS,OTHER [Concomitant]
     Dates: start: 20061003
  5. DECITABINE [Concomitant]
  6. MITOXANTRONE [Concomitant]
  7. SYNTHROID [Concomitant]
     Indication: HYPOTHYROIDISM
     Dosage: 100 UG, QD
     Route: 048
  8. NEXIUM [Concomitant]
     Indication: GASTROOESOPHAGEAL REFLUX DISEASE
     Dosage: 40 MG, QD
     Route: 048
  9. EFFEXOR [Concomitant]
     Indication: DEPRESSION
     Dosage: 25 MG, UNK
     Route: 048
  10. OXYCONTIN [Concomitant]
     Indication: PAIN
     Dosage: 10 MG, BID
     Route: 048
  11. FLOMAX [Concomitant]
     Dosage: 0.4 UNK, UNK
     Route: 048
  12. URSODIOL [Concomitant]
     Dosage: 300 MG, TID
     Route: 048
  13. FK 506 [Concomitant]
     Indication: PROPHYLAXIS AGAINST GRAFT VERSUS HOST DISEASE
     Dosage: 0.5 MG, BID
     Route: 048
  14. PROCRIT [Concomitant]
     Indication: ANAEMIA OF CHRONIC DISEASE
     Dosage: 40000 U, QW
     Route: 058
  15. MYCOPHENOLIC ACID [Concomitant]
     Dosage: 1000 MG, BID
     Route: 048
  16. ACYCLOVIR [Concomitant]
     Indication: HERPES VIRUS INFECTION
     Dosage: 800 MG, BID
     Route: 048
  17. FOLIC ACID [Concomitant]
     Indication: FOLATE DEFICIENCY
     Dosage: 1 MG, QD
     Route: 048
  18. OXYCODONE HCL [Concomitant]
     Indication: PAIN
     Dosage: 5-10 MG Q#HRS PRN
     Route: 048
  19. ATIVAN [Concomitant]
     Indication: NAUSEA
     Dosage: 1 MG Q4 PRN
  20. REGLAN [Concomitant]
     Indication: NAUSEA
     Dosage: 10-30 MG QD + QHS PRN
     Route: 048

REACTIONS (33)
  - ALANINE AMINOTRANSFERASE INCREASED [None]
  - ASPARTATE AMINOTRANSFERASE INCREASED [None]
  - ASTHENIA [None]
  - BACTERAEMIA [None]
  - BLOOD ALKALINE PHOSPHATASE INCREASED [None]
  - BLOOD BILIRUBIN INCREASED [None]
  - BLOOD LACTATE DEHYDROGENASE INCREASED [None]
  - COMPLICATIONS OF BONE MARROW TRANSPLANT [None]
  - DECREASED APPETITE [None]
  - DEPRESSED LEVEL OF CONSCIOUSNESS [None]
  - ENTEROCOCCAL INFECTION [None]
  - FAILURE TO THRIVE [None]
  - FEBRILE NEUTROPENIA [None]
  - FLUID RETENTION [None]
  - HAEMOLYTIC ANAEMIA [None]
  - HAEMORRHAGE [None]
  - LETHARGY [None]
  - LIVER FUNCTION TEST ABNORMAL [None]
  - LOW DENSITY LIPOPROTEIN INCREASED [None]
  - LUNG CONSOLIDATION [None]
  - MALIGNANT NEOPLASM PROGRESSION [None]
  - MARROW HYPERPLASIA [None]
  - MENTAL IMPAIRMENT [None]
  - NAIL AVULSION [None]
  - ORGAN FAILURE [None]
  - RENAL FAILURE [None]
  - RESPIRATORY FAILURE [None]
  - SOMNOLENCE [None]
  - STEM CELL TRANSPLANT [None]
  - STOMATOCOCCAL INFECTION [None]
  - THROMBOCYTOPENIA [None]
  - TREMOR [None]
  - VOMITING [None]
